FAERS Safety Report 8015659 (Version 7)
Quarter: 2012Q4

REPORT INFORMATION
  Report Type: 
  Country: AU (occurrence: AU)
  Receive Date: 20110629
  Receipt Date: 20120920
  Transmission Date: 20130627
  Serious: Yes (Hospitalization, Other)
  Sender: FDA-Public Use
  Company Number: PHHY2011AU54559

PATIENT
  Age: 77 Year
  Sex: Female

DRUGS (5)
  1. EXJADE [Suspect]
     Indication: IRON OVERLOAD
     Dosage: 1500 mg, UNK
     Dates: start: 20061201
  2. EXJADE [Suspect]
     Dosage: 1000 mg, UNK
     Route: 048
     Dates: start: 20080112
  3. EXJADE [Suspect]
     Dosage: 1500 mg, UNK
     Route: 048
  4. EXJADE [Suspect]
     Dosage: 1000 mg, UNK
  5. NEXIUM [Concomitant]

REACTIONS (7)
  - Pneumonia [Recovered/Resolved]
  - Serum ferritin increased [Not Recovered/Not Resolved]
  - Pharyngitis [Not Recovered/Not Resolved]
  - Diarrhoea [Not Recovered/Not Resolved]
  - Nausea [Not Recovered/Not Resolved]
  - Abdominal pain [Not Recovered/Not Resolved]
  - Abdominal discomfort [Unknown]
